FAERS Safety Report 4428228-5 (Version None)
Quarter: 2004Q3

REPORT INFORMATION
  Report Type: 
  Country: None (occurrence: None)
  Receive Date: 20040726
  Receipt Date: 20040416
  Transmission Date: 20050211
  Serious: No
  Sender: FDA-Public Use
  Company Number: USA040362406

PATIENT
  Age: 84 Year
  Sex: Female

DRUGS (10)
  1. FORTEO [Suspect]
     Indication: OSTEOPOROSIS
     Dosage: 20 UG/1 DAY
     Dates: start: 20040225
  2. TOPROL-XL [Concomitant]
  3. FOSAMAX [Concomitant]
  4. MULTIVITAMIN [Concomitant]
  5. OSCAL (CALCIUM CARBONATE) [Concomitant]
  6. METAMUCIL (PSYLLIUM HYDROPHILLIC MUCILLOID) [Concomitant]
  7. ALLBEE WITH C [Concomitant]
  8. GLUCOSAMINE W/CHONDROITIN SULFATES [Concomitant]
  9. VALIUM [Concomitant]
  10. PRILOSEC [Concomitant]

REACTIONS (3)
  - CHEST PAIN [None]
  - HEART RATE INCREASED [None]
  - HOT FLUSH [None]
